FAERS Safety Report 14391832 (Version 4)
Quarter: 2019Q2

REPORT INFORMATION
  Report Type: Spontaneous
  Country: JP (occurrence: JP)
  Receive Date: 20180116
  Receipt Date: 20190605
  Transmission Date: 20190711
  Serious: Yes (Hospitalization)
  Sender: FDA-Public Use
  Company Number: JP-JNJFOC-20180117349

PATIENT
  Age: 35 Year
  Sex: Female
  Weight: 77 kg

DRUGS (10)
  1. BENZOCAINE. [Concomitant]
     Active Substance: BENZOCAINE
     Indication: PULPITIS DENTAL
     Route: 061
     Dates: start: 20171201, end: 20171201
  2. EPINEPHRINE W/LIDOCAINE HYDROCHLORIDE [Concomitant]
     Active Substance: EPINEPHRINE\LIDOCAINE HYDROCHLORIDE
     Indication: PULPITIS DENTAL
     Route: 061
     Dates: start: 20171201, end: 20171201
  3. METFORMIN HYDROCHLORIDE. [Concomitant]
     Active Substance: METFORMIN HYDROCHLORIDE
     Indication: TYPE 2 DIABETES MELLITUS
     Dosage: DOSE: 500 MG IN THE MORNING AND 750 MG IN THE EVENING
     Route: 048
     Dates: start: 20110705
  4. LOBU [Concomitant]
     Active Substance: LOBUCAVIR
     Indication: HEADACHE
     Route: 048
     Dates: start: 201611
  5. VICTOZA [Concomitant]
     Active Substance: LIRAGLUTIDE
     Indication: TYPE 2 DIABETES MELLITUS
     Route: 058
     Dates: start: 20141118
  6. CANAGLU [Suspect]
     Active Substance: CANAGLIFLOZIN
     Indication: TYPE 2 DIABETES MELLITUS
     Route: 048
     Dates: start: 20161206
  7. LANDSEN [Concomitant]
     Active Substance: CLONAZEPAM
     Indication: HYPOAESTHESIA ORAL
     Route: 048
     Dates: start: 201611
  8. MINOXIDIL. [Concomitant]
     Active Substance: MINOXIDIL
     Indication: ALOPECIA
     Route: 062
     Dates: start: 2016
  9. ENALAPRIL [Concomitant]
     Active Substance: ENALAPRIL
     Indication: HYPERTENSION
     Route: 048
     Dates: start: 2007
  10. ZOLPIDEM TARTRATE. [Concomitant]
     Active Substance: ZOLPIDEM TARTRATE
     Indication: INSOMNIA
     Route: 048
     Dates: start: 201611

REACTIONS (1)
  - Facial paralysis [Recovered/Resolved]

NARRATIVE: CASE EVENT DATE: 20171231
